FAERS Safety Report 9539345 (Version 1)
Quarter: 2013Q3

REPORT INFORMATION
  Report Type: Report from Study
  Country: MX (occurrence: MX)
  Receive Date: 20130920
  Receipt Date: 20130920
  Transmission Date: 20140515
  Serious: Yes (Other)
  Sender: FDA-Public Use
  Company Number: PHHY2013MX104898

PATIENT
  Age: 75 Year
  Sex: Male

DRUGS (4)
  1. GALVUS [Suspect]
     Indication: DIABETES MELLITUS
     Dosage: 50 MG, UNK
     Route: 048
  2. RASILEZ HCT [Suspect]
     Dosage: 300 MG, UNK
  3. EXFORGE [Suspect]
     Dosage: 320/10 MG, UNK
  4. ACLASTA [Suspect]
     Dosage: 5 MG, UNK
     Route: 042

REACTIONS (1)
  - Renal disorder [Not Recovered/Not Resolved]
